FAERS Safety Report 23744165 (Version 1)
Quarter: 2024Q2

REPORT INFORMATION
  Report Type: Spontaneous
  Country: FR (occurrence: FR)
  Receive Date: 20240415
  Receipt Date: 20240415
  Transmission Date: 20240716
  Serious: Yes (Hospitalization)
  Sender: FDA-Public Use
  Company Number: FR-SUN PHARMACEUTICAL INDUSTRIES LTD-2024RR-442370

PATIENT
  Age: 74 Year
  Sex: Male
  Weight: 70.5 kg

DRUGS (5)
  1. SERTRALINE [Suspect]
     Active Substance: SERTRALINE HYDROCHLORIDE
     Indication: Depression
     Dosage: 50 MILLIGRAM, DAILY
     Route: 048
     Dates: start: 20231009, end: 20231017
  2. SERTRALINE [Suspect]
     Active Substance: SERTRALINE HYDROCHLORIDE
     Dosage: 50 MILLIGRAM, DAILY
     Route: 048
     Dates: start: 20231208, end: 20231214
  3. SERTRALINE [Suspect]
     Active Substance: SERTRALINE HYDROCHLORIDE
     Dosage: 25 MILLIGRAM, DAILY
     Route: 048
     Dates: start: 20231003, end: 20231008
  4. SERTRALINE [Suspect]
     Active Substance: SERTRALINE HYDROCHLORIDE
     Dosage: 100 MILLIGRAM, DAILY
     Route: 048
     Dates: start: 20231025, end: 20231207
  5. SERTRALINE [Suspect]
     Active Substance: SERTRALINE HYDROCHLORIDE
     Dosage: 75 MILLIGRAM, DAILY
     Route: 048
     Dates: start: 20231018, end: 20231024

REACTIONS (3)
  - Cholestasis [Recovering/Resolving]
  - Liver function test abnormal [Recovering/Resolving]
  - Hepatic cytolysis [Recovered/Resolved]

NARRATIVE: CASE EVENT DATE: 20231116
